FAERS Safety Report 8917476 (Version 2)
Quarter: 2012Q4

REPORT INFORMATION
  Report Type: 
  Country: GB (occurrence: GB)
  Receive Date: 20121119
  Receipt Date: 20121206
  Transmission Date: 20130627
  Serious: Yes (Death)
  Sender: FDA-Public Use
  Company Number: GB-B.I. PHARMACEUTICALS,INC./RIDGEFIELD-2012-UK-01768UK

PATIENT

DRUGS (1)
  1. PRADAXA [Suspect]

REACTIONS (2)
  - Cerebral haemorrhage [Fatal]
  - Headache [Unknown]
